FAERS Safety Report 13666670 (Version 1)
Quarter: 2017Q2

REPORT INFORMATION
  Report Type: Spontaneous
  Country: US (occurrence: US)
  Receive Date: 20170619
  Receipt Date: 20170619
  Transmission Date: 20170830
  Serious: No
  Sender: FDA-Public Use
  Company Number: US-ROCHE-1480190

PATIENT
  Sex: Female

DRUGS (9)
  1. XGEVA [Concomitant]
     Active Substance: DENOSUMAB
  2. KEPPRA [Concomitant]
     Active Substance: LEVETIRACETAM
  3. VITAMIN D2 [Concomitant]
     Active Substance: ERGOCALCIFEROL
     Route: 065
  4. ENZYMES [Concomitant]
  5. NEURONTIN [Concomitant]
     Active Substance: GABAPENTIN
  6. BUSPAR [Concomitant]
     Active Substance: BUSPIRONE HYDROCHLORIDE
  7. L-LYSINE [Concomitant]
     Active Substance: LYSINE
  8. XELODA [Suspect]
     Active Substance: CAPECITABINE
     Indication: BREAST CANCER METASTATIC
     Route: 065
     Dates: start: 20141015
  9. NONI JUICE [Concomitant]
     Active Substance: NONI FRUIT JUICE

REACTIONS (3)
  - Rash [Not Recovered/Not Resolved]
  - Oral discomfort [Not Recovered/Not Resolved]
  - Oral mucosal erythema [Not Recovered/Not Resolved]
